FAERS Safety Report 15885268 (Version 1)
Quarter: 2019Q1

REPORT INFORMATION
  Report Type: Spontaneous
  Country: DE (occurrence: DE)
  Receive Date: 20190129
  Receipt Date: 20190129
  Transmission Date: 20190417
  Serious: Yes (Hospitalization, Other)
  Sender: FDA-Public Use
  Company Number: DE-MYLANLABS-2019M1007555

PATIENT
  Age: 29 Year
  Sex: Female

DRUGS (11)
  1. KEPPRA [Suspect]
     Active Substance: LEVETIRACETAM
     Dosage: 1000 MILLIGRAM, BID (1000-0-1000 TWICE DAILY, 2X/DAY (BID))
  2. TAVOR (LORAZEPAM) [Suspect]
     Active Substance: LORAZEPAM
     Indication: PRODUCT USED FOR UNKNOWN INDICATION
     Dosage: 2.5MG
  3. KEPPRA [Suspect]
     Active Substance: LEVETIRACETAM
     Dosage: 1500 MILLIGRAM, BID
  4. NOVALGIN (METAMIZOLE SODIUM) [Concomitant]
     Active Substance: METAMIZOLE SODIUM
     Indication: PAIN
     Dosage: UNK
  5. VIMPAT [Suspect]
     Active Substance: LACOSAMIDE
     Indication: PRODUCT USED FOR UNKNOWN INDICATION
     Dosage: 100 MILLIGRAM, BID (100-0-100 TWICE DAILY, 100 MG 2X/DAY (BID))
  6. RIOPAN                             /00141701/ [Concomitant]
     Active Substance: MAGALDRATE
     Indication: ABDOMINAL PAIN UPPER
     Dosage: UNK
  7. LEVETIRACETAM. [Suspect]
     Active Substance: LEVETIRACETAM
     Indication: PRODUCT USED FOR UNKNOWN INDICATION
     Dosage: UNK
  8. KEPPRA [Suspect]
     Active Substance: LEVETIRACETAM
     Dosage: 250MG
  9. FYCOMPA [Concomitant]
     Active Substance: PERAMPANEL
     Indication: PRODUCT USED FOR UNKNOWN INDICATION
     Dosage: UNK
  10. KEPPRA [Suspect]
     Active Substance: LEVETIRACETAM
     Indication: PRODUCT USED FOR UNKNOWN INDICATION
     Dosage: 500 MILLIGRAM, BID (500 MILLIGRAM, QD (500-0-500 TWICE DAILY, 2X/DAY (BID) ))
     Dates: end: 201612
  11. TAVOR (LORAZEPAM) [Suspect]
     Active Substance: LORAZEPAM
     Dosage: 2MG

REACTIONS (16)
  - Learning disorder [Unknown]
  - Disturbance in attention [Unknown]
  - Headache [Unknown]
  - Fatigue [Unknown]
  - Memory impairment [Unknown]
  - Dizziness [Unknown]
  - Gait disturbance [Unknown]
  - Disability [Unknown]
  - Muscle twitching [Recovered/Resolved]
  - Gastritis [Unknown]
  - Intentional product misuse [Unknown]
  - Drug intolerance [Unknown]
  - Decreased appetite [Unknown]
  - Tremor [Recovered/Resolved]
  - Weight decreased [Unknown]
  - Loss of consciousness [Unknown]

NARRATIVE: CASE EVENT DATE: 2016
